FAERS Safety Report 9610616 (Version 1)
Quarter: 2013Q4

REPORT INFORMATION
  Report Type: Spontaneous
  Country: US (occurrence: US)
  Receive Date: 20131009
  Receipt Date: 20131009
  Transmission Date: 20140711
  Serious: Yes (Hospitalization)
  Sender: FDA-Public Use
  Company Number: US-B.I. PHARMACEUTICALS,INC./RIDGEFIELD-2013-BI-31489BP

PATIENT
  Sex: Male
  Weight: 91 kg

DRUGS (2)
  1. COMBIVENT [Suspect]
     Indication: WHEEZING
     Dosage: STRENGTH: 18 MCG / 103 MCG;
     Route: 055
     Dates: start: 2010, end: 201306
  2. COMBIVENT [Suspect]
     Indication: COUGH

REACTIONS (5)
  - Back injury [Recovered/Resolved]
  - Loss of consciousness [Recovered/Resolved]
  - Blood sodium decreased [Recovered/Resolved]
  - Fall [Recovered/Resolved]
  - Off label use [Recovered/Resolved]
